FAERS Safety Report 6761191-0 (Version None)
Quarter: 2010Q2

REPORT INFORMATION
  Report Type: 
  Country: None (occurrence: None)
  Receive Date: 20100602
  Receipt Date: 20080408
  Transmission Date: 20101027
  Serious: No
  Sender: FDA-Public Use
  Company Number: 2008-00065

PATIENT
  Age: 40 Year
  Sex: Female
  Weight: 56.246 kg

DRUGS (1)
  1. ZICAM COLD REMEDY GEL SWABS [Suspect]
     Dosage: QID  X 6 DAYS
     Dates: start: 20080331, end: 20080406

REACTIONS (2)
  - AGEUSIA [None]
  - ANOSMIA [None]
